FAERS Safety Report 9052677 (Version 1)
Quarter: 2013Q1

REPORT INFORMATION
  Report Type: Spontaneous
  Country: US (occurrence: US)
  Receive Date: 20130207
  Receipt Date: 20130207
  Transmission Date: 20140127
  Serious: No
  Sender: FDA-Public Use
  Company Number: US-PFIZER INC-2013042616

PATIENT
  Sex: Female

DRUGS (2)
  1. LYRICA [Suspect]
     Dosage: 150 MG, 2X/DAY
  2. LYRICA [Suspect]
     Dosage: 75 MG, 2X/DAY
     Dates: end: 20130127

REACTIONS (5)
  - Diarrhoea [Unknown]
  - Influenza like illness [Unknown]
  - Anxiety [Unknown]
  - Asthenia [Unknown]
  - Headache [Unknown]
